FAERS Safety Report 7415230-4 (Version None)
Quarter: 2011Q2

REPORT INFORMATION
  Report Type: 
  Country: None (occurrence: None)
  Receive Date: 20110414
  Receipt Date: 20110411
  Transmission Date: 20111010
  Serious: Yes (Death, Hospitalization, Other)
  Sender: FDA-Public Use
  Company Number: PHHY2010MX51903

PATIENT
  Sex: Female

DRUGS (5)
  1. CO-DIOVAN [Suspect]
     Indication: HYPERTENSION
     Dosage: 160 MG VALS AND 12.5 MG HCT, 1 TABLET DAILY
     Route: 048
     Dates: start: 20050401
  2. TEBONIN [Concomitant]
  3. NAPROXEN [Concomitant]
  4. DICLOFENAC [Concomitant]
  5. CINNARIZINE [Concomitant]

REACTIONS (8)
  - MULTI-ORGAN FAILURE [None]
  - RENAL FAILURE [None]
  - CARDIAC ARREST [None]
  - PNEUMONIA [None]
  - MYOCARDIAL INFARCTION [None]
  - CARDIAC FAILURE [None]
  - PERIPHERAL ARTERIAL OCCLUSIVE DISEASE [None]
  - BLOOD GLUCOSE INCREASED [None]
